FAERS Safety Report 15295691 (Version 3)
Quarter: 2018Q4

REPORT INFORMATION
  Report Type: Report from Study
  Country: US (occurrence: US)
  Receive Date: 20180820
  Receipt Date: 20181026
  Transmission Date: 20190204
  Serious: Yes (Death, Hospitalization, Other)
  Sender: FDA-Public Use
  Company Number: US-MYLANLABS-2018M1062305

PATIENT
  Sex: Male
  Weight: 61.68 kg

DRUGS (1)
  1. CLOZAPINE. [Suspect]
     Active Substance: CLOZAPINE
     Indication: PARKINSON^S DISEASE PSYCHOSIS
     Dosage: 62.5 MG, HS

REACTIONS (4)
  - Fall [Unknown]
  - Agitation [Unknown]
  - Subdural haematoma [Fatal]
  - Mental disorder [Unknown]

NARRATIVE: CASE EVENT DATE: 2018
